FAERS Safety Report 13794601 (Version 1)
Quarter: 2017Q3

REPORT INFORMATION
  Report Type: Spontaneous
  Country: BR (occurrence: BR)
  Receive Date: 20170726
  Receipt Date: 20170726
  Transmission Date: 20171127
  Serious: Yes (Hospitalization)
  Sender: FDA-Public Use
  Company Number: BR-ASTRAZENECA-2017SE75566

PATIENT
  Sex: Female

DRUGS (1)
  1. XIGDUO XR [Suspect]
     Active Substance: DAPAGLIFLOZIN PROPANEDIOL\METFORMIN HYDROCHLORIDE
     Dosage: 5/1000 MG
     Route: 048

REACTIONS (2)
  - Hypoglycaemia [Recovered/Resolved]
  - Transient ischaemic attack [Recovered/Resolved]
